FAERS Safety Report 17841212 (Version 3)
Quarter: 2020Q2

REPORT INFORMATION
  Report Type: Spontaneous
  Country: US (occurrence: US)
  Receive Date: 20200529
  Receipt Date: 20200630
  Transmission Date: 20200714
  Serious: No
  Sender: FDA-Public Use
  Company Number: US-PFIZER INC-2020211270

PATIENT
  Age: 48 Year
  Sex: Female
  Weight: 92 kg

DRUGS (1)
  1. XELJANZ XR [Suspect]
     Active Substance: TOFACITINIB CITRATE
     Indication: RHEUMATOID ARTHRITIS
     Dosage: 11 MG, 1X/DAY
     Route: 048
     Dates: start: 20200527

REACTIONS (6)
  - Somnolence [Not Recovered/Not Resolved]
  - Agitation [Recovering/Resolving]
  - Headache [Recovering/Resolving]
  - Emotional disorder [Recovering/Resolving]
  - Insomnia [Unknown]
  - Therapeutic response unexpected [Unknown]

NARRATIVE: CASE EVENT DATE: 20200527
